FAERS Safety Report 6031455-7 (Version None)
Quarter: 2009Q1

REPORT INFORMATION
  Report Type: 
  Country: None (occurrence: None)
  Receive Date: 20090108
  Receipt Date: 20081224
  Transmission Date: 20090719
  Serious: Yes (Other)
  Sender: FDA-Public Use
  Company Number: JP-PFIZER INC-2008076411

PATIENT

DRUGS (4)
  1. CAMPTOSAR [Suspect]
     Indication: LARGE INTESTINE CARCINOMA
     Dosage: 225 MG, UNK
     Route: 042
     Dates: start: 20080807, end: 20080902
  2. FLUOROURACIL [Suspect]
     Indication: LARGE INTESTINE CARCINOMA
     Dosage: 600 MG, UNK, BOLUS
     Route: 042
     Dates: start: 20080807, end: 20080902
  3. FLUOROURACIL [Suspect]
     Dosage: 3600 MG, UNK, CONTINUOS INFUSION
     Route: 042
     Dates: start: 20080807, end: 20080902
  4. CALCIUM LEVOFOLINATE [Concomitant]
     Indication: LARGE INTESTINE CARCINOMA
     Dosage: 300 MG, UNK
     Route: 042
     Dates: start: 20080807, end: 20080902

REACTIONS (1)
  - LOSS OF CONSCIOUSNESS [None]
